FAERS Safety Report 7559459-3 (Version None)
Quarter: 2011Q2

REPORT INFORMATION
  Report Type: 
  Country: None (occurrence: None)
  Receive Date: 20110621
  Receipt Date: 20110613
  Transmission Date: 20111010
  Serious: Yes (Hospitalization)
  Sender: FDA-Public Use
  Company Number: US-BRISTOL-MYERS SQUIBB COMPANY-15163512

PATIENT
  Age: 84 Year
  Sex: Male

DRUGS (4)
  1. PLACEBO [Suspect]
     Indication: THROMBOSIS PROPHYLAXIS
     Dosage: INTERUPTED ON 15JUN10, RESTARTED ON 09AUG10
     Route: 048
     Dates: start: 20090824
  2. CELEBREX [Concomitant]
     Dates: start: 20040101, end: 20100615
  3. ASPIRIN [Suspect]
     Dates: start: 20021101, end: 20100615
  4. WARFARIN SODIUM [Suspect]
     Indication: THROMBOSIS PROPHYLAXIS
     Dosage: INTERUPTED ON 15JUN10, RESTARTED ON 09AUG10
     Route: 048
     Dates: start: 20090824

REACTIONS (2)
  - DUODENAL ULCER PERFORATION [None]
  - ABDOMINAL PAIN UPPER [None]
